FAERS Safety Report 10175007 (Version 1)
Quarter: 2014Q2

REPORT INFORMATION
  Report Type: Spontaneous
  Country: NG (occurrence: NG)
  Receive Date: 20140515
  Receipt Date: 20140515
  Transmission Date: 20141212
  Serious: Yes (Other)
  Sender: FDA-Public Use
  Company Number: ALCN2014NG002999

PATIENT
  Age: 14 Year
  Sex: Male

DRUGS (1)
  1. BETOPTIC [Suspect]
     Indication: GLAUCOMA
     Route: 047

REACTIONS (4)
  - Posterior capsule opacification [Unknown]
  - Visual acuity reduced [Unknown]
  - Ocular hyperaemia [Unknown]
  - Eye pain [Unknown]
